FAERS Safety Report 17710885 (Version 1)
Quarter: 2020Q2

REPORT INFORMATION
  Report Type: Spontaneous
  Country: US (occurrence: US)
  Receive Date: 20200427
  Receipt Date: 20200427
  Transmission Date: 20200714
  Serious: No
  Sender: FDA-Public Use
  Company Number: US-PFIZER INC-2020162138

PATIENT
  Age: 60 Year
  Sex: Female

DRUGS (1)
  1. XELJANZ XR [Suspect]
     Active Substance: TOFACITINIB CITRATE
     Indication: PSORIATIC ARTHROPATHY
     Dosage: 11 MG, DAILY
     Route: 048
     Dates: start: 202004

REACTIONS (5)
  - Therapeutic response unexpected [Unknown]
  - Finger deformity [Unknown]
  - Onychoclasis [Unknown]
  - Pre-existing condition improved [Unknown]
  - Nodule [Unknown]

NARRATIVE: CASE EVENT DATE: 202004
